FAERS Safety Report 11437973 (Version 1)
Quarter: 2015Q3

REPORT INFORMATION
  Report Type: Spontaneous
  Country: US (occurrence: US)
  Receive Date: 20150831
  Receipt Date: 20150831
  Transmission Date: 20151125
  Serious: No
  Sender: FDA-Public Use
  Company Number: US-LUNDBECK-DKLU2001405

PATIENT
  Age: 24 Year
  Sex: Female

DRUGS (1)
  1. NORTHERA [Suspect]
     Active Substance: DROXIDOPA
     Indication: SYNCOPE
     Route: 065

REACTIONS (4)
  - Fatigue [Unknown]
  - Dyspnoea [Unknown]
  - Nausea [Unknown]
  - Dizziness [Unknown]

NARRATIVE: CASE EVENT DATE: 20150612
